FAERS Safety Report 16375999 (Version 1)
Quarter: 2019Q2

REPORT INFORMATION
  Report Type: Spontaneous
  Country: FR (occurrence: FR)
  Receive Date: 20190531
  Receipt Date: 20190531
  Transmission Date: 20190711
  Serious: Yes (Other)
  Sender: FDA-Public Use
  Company Number: FR-ACCORD-130288

PATIENT
  Age: 58 Year
  Sex: Female
  Weight: 49 kg

DRUGS (7)
  1. CISPLATIN ACCORD [Suspect]
     Active Substance: CISPLATIN
     Indication: OROPHARYNGEAL CANCER
     Route: 042
     Dates: start: 20190311, end: 20190311
  2. AUGMENTIN [Concomitant]
     Active Substance: AMOXICILLIN\CLAVULANATE POTASSIUM
  3. IZALGI [Concomitant]
     Active Substance: ACETAMINOPHEN\OPIUM
     Dosage: STRENGTH: 500 MG/25 MG
  4. LYRICA [Concomitant]
     Active Substance: PREGABALIN
  5. MOVICOL [Concomitant]
     Active Substance: POLYETHYLENE GLYCOL 3350\POTASSIUM CHLORIDE\SODIUM BICARBONATE\SODIUM CHLORIDE
  6. SPASFON LYOC [Concomitant]
     Active Substance: PHLOROGLUCINOL
     Dosage: STRENGTH: 80 MG
  7. LANSOPRAZOLE. [Concomitant]
     Active Substance: LANSOPRAZOLE

REACTIONS (1)
  - Febrile bone marrow aplasia [Recovering/Resolving]

NARRATIVE: CASE EVENT DATE: 20190401
